FAERS Safety Report 9308962 (Version 4)
Quarter: 2013Q4

REPORT INFORMATION
  Report Type: Spontaneous
  Country: US (occurrence: US)
  Receive Date: 20130524
  Receipt Date: 20131014
  Transmission Date: 20140711
  Serious: Yes (Hospitalization)
  Sender: FDA-Public Use
  Company Number: US-009507513-1305USA012407

PATIENT
  Sex: Female
  Weight: 79.37 kg

DRUGS (3)
  1. NUVARING [Suspect]
     Indication: CONTRACEPTION
     Dosage: UNK
     Route: 067
     Dates: start: 20090216, end: 20090405
  2. NUVARING [Suspect]
     Dosage: UNK
     Route: 067
     Dates: start: 20110714, end: 20111015
  3. SYNTHROID [Concomitant]
     Dosage: UNK
     Dates: start: 2007, end: 2010

REACTIONS (7)
  - Urinary tract infection [Unknown]
  - Deep vein thrombosis [Not Recovered/Not Resolved]
  - Maternal exposure before pregnancy [Unknown]
  - Gestational diabetes [Unknown]
  - Fractured coccyx [Unknown]
  - Drug hypersensitivity [Unknown]
  - Rhinitis allergic [Unknown]
